FAERS Safety Report 20841025 (Version 2)
Quarter: 2023Q2

REPORT INFORMATION
  Report Type: Spontaneous
  Country: US (occurrence: US)
  Receive Date: 20220517
  Receipt Date: 20230512
  Transmission Date: 20230722
  Serious: No
  Sender: FDA-Public Use
  Company Number: US-PFIZER INC-2021007853

PATIENT
  Age: 80 Year
  Sex: Male
  Weight: 70.76 kg

DRUGS (2)
  1. NORPACE CR [Suspect]
     Active Substance: DISOPYRAMIDE PHOSPHATE
     Indication: Cardiomyopathy
     Dosage: 100 MG, 3X/DAY
  2. NORPACE CR [Suspect]
     Active Substance: DISOPYRAMIDE PHOSPHATE
     Dosage: 150 MG, 2X/DAY [NORPACE CR 150 MG WHICH HE TAKES TWICE A DAY]/ 9AM AND 9PM OR 8AM AND 8PM]
     Dates: end: 202103

REACTIONS (3)
  - Drug ineffective [Unknown]
  - Product dose omission issue [Unknown]
  - Off label use [Unknown]
